FAERS Safety Report 19950227 (Version 1)
Quarter: 2021Q4

REPORT INFORMATION
  Report Type: Spontaneous
  Country: NL (occurrence: FR)
  Receive Date: 20211013
  Receipt Date: 20211013
  Transmission Date: 20220303
  Serious: Yes (Other)
  Sender: FDA-Public Use
  Company Number: FR-GILEAD-2021-0550719

PATIENT
  Sex: Male

DRUGS (4)
  1. FOSCARNET [Suspect]
     Active Substance: FOSCARNET
     Indication: Product used for unknown indication
     Dosage: UNK
     Route: 065
     Dates: start: 20190909
  2. IBALIZUMAB [Suspect]
     Active Substance: IBALIZUMAB
     Indication: Product used for unknown indication
     Dosage: UNK
     Route: 065
     Dates: start: 20190909
  3. DORAVIRINE [Suspect]
     Active Substance: DORAVIRINE
     Indication: Product used for unknown indication
     Dosage: UNK
     Route: 065
     Dates: start: 20190909
  4. BICTEGRAVIR\EMTRICITABINE\TENOFOVIR ALAFENAMIDE [Suspect]
     Active Substance: BICTEGRAVIR\EMTRICITABINE\TENOFOVIR ALAFENAMIDE
     Indication: Product used for unknown indication
     Dosage: UNK?THERAPY END DATE - REPORTED AS: ASKED BUT UNKNOWN
     Route: 065
     Dates: start: 20190909

REACTIONS (2)
  - Virologic failure [Unknown]
  - Genotype drug resistance test positive [Not Recovered/Not Resolved]
